FAERS Safety Report 15604252 (Version 3)
Quarter: 2018Q4

REPORT INFORMATION
  Report Type: Report from Study
  Country: None (occurrence: HU)
  Receive Date: 20181110
  Receipt Date: 20181122
  Transmission Date: 20190205
  Serious: Yes (Death, Life-Threatening, Hospitalization)
  Sender: FDA-Public Use
  Company Number: HU-ABBVIE-18S-076-2551148-00

PATIENT
  Age: 72 Year
  Sex: Female
  Weight: 48 kg

DRUGS (10)
  1. STALEVO [Concomitant]
     Active Substance: CARBIDOPA\ENTACAPONE\LEVODOPA
     Indication: PARKINSON^S DISEASE
     Dosage: 125/31.25/200 MG,1 TABLET AT A TIME
     Route: 048
  2. QUETIAPINE. [Concomitant]
     Active Substance: QUETIAPINE
     Indication: AGGRESSION
     Dosage: MORNING AND NOON:1-1TBL, EVENING:2TBLS
     Route: 048
     Dates: start: 20170321
  3. DUODOPA [Suspect]
     Active Substance: CARBIDOPA\LEVODOPA
     Indication: PARKINSON^S DISEASE
     Dosage: MORNING DOSE 5 ML; CONTINUOUS DOSE DURING THE DAY 1.9 ML/H;EXTRA DOSE 0.0 ML
     Route: 050
     Dates: start: 20130404
  4. TRITACE [Concomitant]
     Active Substance: RAMIPRIL
     Indication: HYPERTENSION
     Route: 048
  5. PANTOPRAZOLE [Concomitant]
     Active Substance: PANTOPRAZOLE
     Indication: PROPHYLAXIS
     Route: 048
     Dates: start: 201304
  6. ATORVA TEVA [Concomitant]
     Indication: HYPERLIPIDAEMIA
     Dosage: 1 TABLET IN THE EVENING
     Route: 048
     Dates: start: 201304
  7. MYDERISON [Concomitant]
     Indication: CEREBROVASCULAR ACCIDENT
     Route: 048
  8. CLOPIDOGREL [Concomitant]
     Active Substance: CLOPIDOGREL BISULFATE
     Indication: CEREBROVASCULAR ACCIDENT
     Route: 048
     Dates: start: 201304
  9. NORMODIPINE [Concomitant]
     Active Substance: AMLODIPINE BESYLATE
     Indication: HYPERTENSION
     Route: 048
  10. QUETIAPINE. [Concomitant]
     Active Substance: QUETIAPINE
     Indication: PARANOIA

REACTIONS (3)
  - Immobile [Fatal]
  - Cardiopulmonary failure [Fatal]
  - Pneumonia [Not Recovered/Not Resolved]

NARRATIVE: CASE EVENT DATE: 20181101
